FAERS Safety Report 4970776-3 (Version None)
Quarter: 2006Q1

REPORT INFORMATION
  Report Type: 
  Country: None (occurrence: None)
  Receive Date: 20060209
  Receipt Date: 20051205
  Transmission Date: 20060701
  Serious: Yes (Other)
  Sender: FDA-Public Use
  Company Number: US-JNJFOC-20031205595

PATIENT
  Age: 40 Year
  Sex: Female
  Weight: 58.9676 kg

DRUGS (1)
  1. FLOXIN [Suspect]
     Indication: URINARY TRACT INFECTION
     Dosage: 200 MG, 1 IN 1 DAY, ORAL
     Route: 048
     Dates: start: 20031216

REACTIONS (22)
  - ABDOMINAL PAIN [None]
  - ANOREXIA [None]
  - BLOOD PRESSURE DECREASED [None]
  - DIZZINESS [None]
  - DYSPHONIA [None]
  - DYSURIA [None]
  - GINGIVAL PAIN [None]
  - HALLUCINATION [None]
  - HEADACHE [None]
  - INSOMNIA [None]
  - MUSCLE SPASMS [None]
  - MUSCULAR WEAKNESS [None]
  - PAIN [None]
  - PARAESTHESIA [None]
  - SKIN ODOUR ABNORMAL [None]
  - TENDONITIS [None]
  - TINNITUS [None]
  - TREMOR [None]
  - URINARY INCONTINENCE [None]
  - VAGINAL DISCHARGE [None]
  - VISUAL DISTURBANCE [None]
  - WEIGHT DECREASED [None]
